FAERS Safety Report 24890096 (Version 2)
Quarter: 2025Q1

REPORT INFORMATION
  Report Type: Spontaneous
  Country: US (occurrence: US)
  Receive Date: 20250127
  Receipt Date: 20250203
  Transmission Date: 20250409
  Serious: No
  Sender: VERTEX
  Company Number: US-VERTEX PHARMACEUTICALS-2025-001019

PATIENT

DRUGS (1)
  1. TRIKAFTA [Suspect]
     Active Substance: ELEXACAFTOR\IVACAFTOR\TEZACAFTOR
     Indication: Cystic fibrosis
     Dosage: 2 ORANGE PILLS AND BLUE PILL, 12 HRS. APART
     Route: 048
     Dates: start: 202109

REACTIONS (2)
  - Upper-airway cough syndrome [Not Recovered/Not Resolved]
  - Hypoglycaemia [Unknown]
